FAERS Safety Report 25299586 (Version 2)
Quarter: 2025Q2

REPORT INFORMATION
  Report Type: Report from Study
  Country: CA (occurrence: CA)
  Receive Date: 20250512
  Receipt Date: 20250526
  Transmission Date: 20250717
  Serious: Yes (Other)
  Sender: TAKEDA
  Company Number: CA-TAKEDA-2021TUS021491

PATIENT
  Sex: Female

DRUGS (2)
  1. VEDOLIZUMAB [Suspect]
     Active Substance: VEDOLIZUMAB
     Indication: Crohn^s disease
     Dates: start: 20201020, end: 20230714
  2. VEDOLIZUMAB [Suspect]
     Active Substance: VEDOLIZUMAB
     Indication: Crohn^s disease
     Dosage: 108 MILLIGRAM, Q2WEEKS
     Dates: start: 202304

REACTIONS (6)
  - Crohn^s disease [Unknown]
  - Fistula of small intestine [Unknown]
  - Treatment failure [Not Recovered/Not Resolved]
  - Anorectal polyp [Unknown]
  - Diverticulum intestinal [Unknown]
  - Diarrhoea [Unknown]
